FAERS Safety Report 25705672 (Version 1)
Quarter: 2025Q3

REPORT INFORMATION
  Report Type: Spontaneous
  Country: EU (occurrence: EU)
  Receive Date: 20250820
  Receipt Date: 20250820
  Transmission Date: 20251021
  Serious: Yes (Life-Threatening)
  Sender: BAUSCH AND LOMB
  Company Number: None

PATIENT
  Age: 66 Year
  Sex: Male
  Weight: 76 kg

DRUGS (13)
  1. METFORMIN [Suspect]
     Active Substance: METFORMIN HYDROCHLORIDE
     Indication: Type 2 diabetes mellitus
     Route: 048
     Dates: end: 20250722
  2. METFORMIN [Suspect]
     Active Substance: METFORMIN HYDROCHLORIDE
     Route: 048
  3. KETOPROFEN [Suspect]
     Active Substance: KETOPROFEN
     Indication: Sciatica
     Route: 030
     Dates: start: 20250717, end: 20250722
  4. KETOPROFEN [Suspect]
     Active Substance: KETOPROFEN
     Route: 030
  5. SKENAN [Suspect]
     Active Substance: MORPHINE SULFATE
     Indication: Sciatica
     Dosage: 30 MG, PROLONGED-RELEASE MICROGRANULES IN CAPSULES
     Route: 048
     Dates: start: 20250605, end: 20250722
  6. SKENAN [Suspect]
     Active Substance: MORPHINE SULFATE
     Route: 048
  7. MORPHINE SULFATE [Suspect]
     Active Substance: MORPHINE SULFATE
     Indication: Sciatica
     Dosage: 10 MG, CAPSULE
     Route: 048
     Dates: start: 20250605, end: 20250722
  8. MORPHINE SULFATE [Suspect]
     Active Substance: MORPHINE SULFATE
     Route: 048
  9. PERINDOPRIL [Suspect]
     Active Substance: PERINDOPRIL
     Indication: Hypertension
     Route: 048
     Dates: end: 20250722
  10. PERINDOPRIL [Suspect]
     Active Substance: PERINDOPRIL
     Route: 048
  11. GLICLAZIDE [Suspect]
     Active Substance: GLICLAZIDE
     Indication: Type 2 diabetes mellitus
     Route: 048
     Dates: end: 20250722
  12. GLICLAZIDE [Suspect]
     Active Substance: GLICLAZIDE
     Route: 048
  13. PANTOPRAZOLE [Concomitant]
     Active Substance: PANTOPRAZOLE
     Indication: Product used for unknown indication

REACTIONS (4)
  - Acute kidney injury [Recovering/Resolving]
  - Shock [Recovered/Resolved]
  - Colitis ischaemic [Recovered/Resolved with Sequelae]
  - Lactic acidosis [Recovered/Resolved with Sequelae]

NARRATIVE: CASE EVENT DATE: 20250721
